FAERS Safety Report 15981993 (Version 4)
Quarter: 2020Q3

REPORT INFORMATION
  Report Type: Report from Study
  Country: US (occurrence: US)
  Receive Date: 20190219
  Receipt Date: 20200831
  Transmission Date: 20201102
  Serious: Yes (Death, Hospitalization)
  Sender: FDA-Public Use
  Company Number: US-ARBOR PHARMACEUTICALS, LLC-US-2019ARB000110

PATIENT
  Age: 55 Year
  Sex: Male
  Weight: 99.7 kg

DRUGS (4)
  1. ACETAMINOPHEN. [Concomitant]
     Active Substance: ACETAMINOPHEN
     Indication: PAIN
     Dosage: 650 MG, Q6H
     Route: 048
     Dates: start: 201812, end: 20190107
  2. OXYCODONE [Concomitant]
     Active Substance: OXYCODONE
     Indication: PAIN
     Dosage: 5 MG, Q4H
     Route: 048
     Dates: start: 20181214, end: 20190317
  3. CARMUSTINE. [Suspect]
     Active Substance: CARMUSTINE
     Indication: GLIOBLASTOMA MULTIFORME
     Dosage: 7 WAFERS, 7.7 MG EACH, 53.9 MG TOTAL
     Dates: start: 20181214
  4. PERCOCET [Concomitant]
     Active Substance: ACETAMINOPHEN\OXYCODONE HYDROCHLORIDE
     Indication: PRODUCT USED FOR UNKNOWN INDICATION
     Dosage: UNK

REACTIONS (5)
  - Malignant neoplasm progression [Fatal]
  - Mental status changes [Recovered/Resolved]
  - Hemiparesis [Recovered/Resolved]
  - Speech disorder [Recovered/Resolved]
  - Oedema [Recovered/Resolved]

NARRATIVE: CASE EVENT DATE: 20190107
